FAERS Safety Report 21124941 (Version 2)
Quarter: 2023Q2

REPORT INFORMATION
  Report Type: Spontaneous
  Country: GB (occurrence: GB)
  Receive Date: 20220725
  Receipt Date: 20230502
  Transmission Date: 20230722
  Serious: Yes (Other)
  Sender: FDA-Public Use
  Company Number: None

PATIENT
  Age: 86 Year
  Sex: Male
  Weight: 76 kg

DRUGS (12)
  1. ATORVASTATIN [Suspect]
     Active Substance: ATORVASTATIN
     Indication: Ill-defined disorder
     Dates: start: 20201118
  2. ATORVASTATIN [Suspect]
     Active Substance: ATORVASTATIN
     Dates: start: 20220524
  3. ALLOPURINOL [Concomitant]
     Active Substance: ALLOPURINOL
     Indication: Ill-defined disorder
     Dosage: TAKE ONE DAILY
     Dates: start: 20201118
  4. ASPIRIN [Concomitant]
     Active Substance: ASPIRIN
     Indication: Ill-defined disorder
     Dosage: TAKE ONE DAILY
     Dates: start: 20201118
  5. CALCIUM CARBONATE [Concomitant]
     Active Substance: CALCIUM CARBONATE
     Indication: Ill-defined disorder
     Dosage: TAKE ONE TWICE DAILY
     Dates: start: 20201118
  6. NITROGLYCERIN [Concomitant]
     Active Substance: NITROGLYCERIN
     Indication: Ill-defined disorder
     Dosage: ONE PUFF AS NEEDED FOR CHEST PAINS
     Dates: start: 20201118
  7. IBUPROFEN [Concomitant]
     Active Substance: IBUPROFEN
     Indication: Ill-defined disorder
     Dosage: APPLY 3 TIMES/DAY TO KNEE
     Dates: start: 20220218
  8. LANSOPRAZOLE [Concomitant]
     Active Substance: LANSOPRAZOLE
     Indication: Ill-defined disorder
     Dosage: 1 CAPSULE DAILY
     Dates: start: 20201118
  9. LEVOTHYROXINE [Concomitant]
     Active Substance: LEVOTHYROXINE
     Indication: Ill-defined disorder
     Dosage: TAKE ONE DAILY
     Dates: start: 20201118
  10. LISINOPRIL [Concomitant]
     Active Substance: LISINOPRIL
     Indication: Ill-defined disorder
     Dosage: TAKE ONE DAILY
     Dates: start: 20201118
  11. ACETAMINOPHEN [Concomitant]
     Active Substance: ACETAMINOPHEN
     Indication: Ill-defined disorder
     Dosage: 2 TABLETS FOUR TIMES DAILY WHEN REQUIRED (MAX 8...
     Dates: start: 20201118
  12. PREDNISOLONE [Concomitant]
     Active Substance: PREDNISOLONE
     Indication: Ill-defined disorder
     Dosage: 15MG DAILY FOR 2/52, REDUCING BY 5MG EVERY 2/52 UNTIL BACK ON 10MG DAILY
     Dates: start: 20201118

REACTIONS (1)
  - Autoimmune hepatitis [Not Recovered/Not Resolved]

NARRATIVE: CASE EVENT DATE: 20220524
